FAERS Safety Report 10632723 (Version 2)
Quarter: 2014Q4

REPORT INFORMATION
  Report Type: Spontaneous
  Country: US (occurrence: US)
  Receive Date: 20141205
  Receipt Date: 20141205
  Transmission Date: 20150529
  Serious: No
  Sender: FDA-Public Use
  Company Number: US201003004596

PATIENT
  Age: 66 Year
  Sex: Female
  Weight: 77.1 kg

DRUGS (3)
  1. EXENATIDE UNK STRENGTH PEN, DISPOSABLE DEVICE [Concomitant]
     Active Substance: EXENATIDE
  2. BYETTA [Suspect]
     Active Substance: EXENATIDE
     Indication: TYPE 2 DIABETES MELLITUS
     Dosage: 2008?SOME TIMES 5MCG QD?ONGOING
     Route: 058
     Dates: start: 2005
  3. METFORMIN [Concomitant]
     Active Substance: METFORMIN HYDROCHLORIDE

REACTIONS (2)
  - Weight decreased [Recovered/Resolved]
  - Spondylitis [Not Recovered/Not Resolved]

NARRATIVE: CASE EVENT DATE: 2005
